FAERS Safety Report 4591827-4 (Version None)
Quarter: 2005Q1

REPORT INFORMATION
  Report Type: 
  Country: None (occurrence: None)
  Receive Date: 20050222
  Receipt Date: 20050214
  Transmission Date: 20050727
  Serious: Yes (Life-Threatening, Hospitalization, Disabling, Other)
  Sender: FDA-Public Use
  Company Number: 2003-03-2250

PATIENT
  Age: 50 Year
  Sex: Female
  Weight: 93.8946 kg

DRUGS (2)
  1. PEG-INTRON [Suspect]
     Indication: HEPATITIS C
     Dosage: 150 MCG QWK SUBCUTANEOUS
     Route: 058
     Dates: start: 20021015, end: 20030128
  2. REBETOL [Suspect]
     Indication: HEPATITIS C
     Dosage: 1200 MG QD ORAL
     Route: 048
     Dates: start: 20021215, end: 20030128

REACTIONS (22)
  - ABDOMINAL PAIN [None]
  - ALOPECIA [None]
  - ANXIETY [None]
  - ARTHRALGIA [None]
  - CHEST DISCOMFORT [None]
  - CHILLS [None]
  - DEPRESSED MOOD [None]
  - DIZZINESS [None]
  - FIBROMYALGIA [None]
  - HAEMATOCHEZIA [None]
  - HAEMOPTYSIS [None]
  - HAEMORRHOIDS [None]
  - HYPERTHYROIDISM [None]
  - INSOMNIA [None]
  - LUPUS-LIKE SYNDROME [None]
  - MYOCARDIAL INFARCTION [None]
  - PALPITATIONS [None]
  - PYREXIA [None]
  - RASH ERYTHEMATOUS [None]
  - RASH PRURITIC [None]
  - THYROTOXIC CRISIS [None]
  - TREMOR [None]
